FAERS Safety Report 9300230 (Version 1)
Quarter: 2013Q1

REPORT INFORMATION
  Report Type: Spontaneous
  Country: US (occurrence: None)
  Receive Date: 20130107
  Receipt Date: 20130107
  Transmission Date: 20140127
  Serious: Yes (Hospitalization, Other)
  Sender: FDA-Public Use
  Company Number: PHEH2012US021859

PATIENT
  Age: 17 Year
  Sex: Male
  Weight: 70.3 kg

DRUGS (1)
  1. GILENYA (FINGOLIMOD) CAPSULE, 0.5MG [Suspect]
     Indication: MULTIPLE SCLEROSIS
     Route: 048
     Dates: start: 20110406

REACTIONS (3)
  - Multiple sclerosis relapse [None]
  - Drug administered to patient of inappropriate age [None]
  - Central nervous system lesion [None]
